FAERS Safety Report 18151472 (Version 1)
Quarter: 2020Q3

REPORT INFORMATION
  Report Type: Report from Study
  Country: CA (occurrence: CA)
  Receive Date: 20200814
  Receipt Date: 20200814
  Transmission Date: 20201103
  Serious: Yes (Other)
  Sender: FDA-Public Use
  Company Number: CA-JNJFOC-20200805429

PATIENT
  Age: 32 Year
  Sex: Female

DRUGS (1)
  1. STELARA [Suspect]
     Active Substance: USTEKINUMAB
     Indication: PSORIASIS
     Dosage: PATIENT HAD INJECTION 12 WEEKS AGO.
     Route: 058
     Dates: start: 20200117

REACTIONS (1)
  - Groin abscess [Recovered/Resolved with Sequelae]

NARRATIVE: CASE EVENT DATE: 2020
